FAERS Safety Report 18843495 (Version 1)
Quarter: 2021Q1

REPORT INFORMATION
  Report Type: Report from Study
  Country: US (occurrence: US)
  Receive Date: 20210203
  Receipt Date: 20210203
  Transmission Date: 20210419
  Serious: No
  Sender: FDA-Public Use
  Company Number: US-EXELIXIS-CABO-20031371

PATIENT
  Sex: Male

DRUGS (1)
  1. CABOMETYX [Suspect]
     Active Substance: CABOZANTINIB S-MALATE
     Indication: HEPATOCELLULAR CARCINOMA
     Dosage: 40 MG, QD
     Route: 048
     Dates: start: 20200616

REACTIONS (5)
  - Skin exfoliation [Recovered/Resolved]
  - Burning sensation [Unknown]
  - Abdominal pain [Recovered/Resolved]
  - Gait inability [Unknown]
  - Mouth haemorrhage [Recovered/Resolved]
